FAERS Safety Report 18589713 (Version 1)
Quarter: 2020Q4

REPORT INFORMATION
  Report Type: Spontaneous
  Country: US (occurrence: US)
  Receive Date: 20201205
  Receipt Date: 20201205
  Transmission Date: 20210114
  Serious: Yes (Hospitalization)
  Sender: FDA-Public Use
  Company Number: None

PATIENT
  Age: 17 Year
  Sex: Female
  Weight: 85.2 kg

DRUGS (3)
  1. ONCASPAR [Suspect]
     Active Substance: PEGASPARGASE
     Dates: end: 20201106
  2. METHOTREXATE. [Suspect]
     Active Substance: METHOTREXATE
     Dates: end: 20201116
  3. VINCRISTINE SULFATE. [Suspect]
     Active Substance: VINCRISTINE SULFATE
     Dates: end: 20201116

REACTIONS (9)
  - Venoocclusive liver disease [None]
  - Escherichia test positive [None]
  - Staphylococcus test positive [None]
  - Tachypnoea [None]
  - Septic shock [None]
  - Acute kidney injury [None]
  - Pancytopenia [None]
  - Encephalopathy [None]
  - Encephalitis [None]

NARRATIVE: CASE EVENT DATE: 20201127
